FAERS Safety Report 5325273-2 (Version None)
Quarter: 2007Q2

REPORT INFORMATION
  Report Type: 
  Country: None (occurrence: None)
  Receive Date: 20070515
  Receipt Date: 20070504
  Transmission Date: 20071010
  Serious: Yes (Hospitalization)
  Sender: FDA-Public Use
  Company Number: FR-ELI_LILLY_AND_COMPANY-FR200703003007

PATIENT
  Age: 78 Year
  Sex: Female
  Weight: 44 kg

DRUGS (5)
  1. CALPEROS [Concomitant]
  2. DIANTALVIC [Concomitant]
  3. MYOLASTAN [Concomitant]
     Indication: MUSCLE CONTRACTURE
     Dosage: 1 D/F, DAILY (1/D)
     Dates: start: 20070416
  4. FORTEO [Suspect]
     Indication: OSTEOPOROSIS
     Dosage: 20 UG, DAILY (1/D)
     Route: 058
     Dates: start: 20060211
  5. DIALGIREX [Concomitant]
     Indication: BACK PAIN

REACTIONS (2)
  - EPILEPSY [None]
  - LOSS OF CONSCIOUSNESS [None]
